FAERS Safety Report 9421337 (Version 1)
Quarter: 2013Q3

REPORT INFORMATION
  Report Type: Report from Study
  Country: TR (occurrence: TR)
  Receive Date: 20130725
  Receipt Date: 20130725
  Transmission Date: 20140515
  Serious: Yes (Other)
  Sender: FDA-Public Use
  Company Number: TR-BAXTER-2013BAX027852

PATIENT
  Sex: 0

DRUGS (2)
  1. ENDOXAN 1G. IV [Suspect]
     Indication: STEM CELL TRANSPLANT
     Dosage: 4 GR/M2
     Route: 042
  2. ETOPOSIDE [Suspect]
     Indication: STEM CELL TRANSPLANT
     Dosage: 1.6 GR/M2
     Route: 065

REACTIONS (2)
  - Cardiac failure congestive [Unknown]
  - Pulmonary oedema [Unknown]
